FAERS Safety Report 9215950 (Version 1)
Quarter: 2013Q2

REPORT INFORMATION
  Report Type: Spontaneous
  Country: GB (occurrence: None)
  Receive Date: 20130404
  Receipt Date: 20130404
  Transmission Date: 20140414
  Serious: Yes (Hospitalization)
  Sender: FDA-Public Use
  Company Number: GB-DEXPARM-20130133

PATIENT
  Age: 35 Year
  Sex: Female

DRUGS (5)
  1. OMEPRAZOLE [Suspect]
     Route: 048
  2. PROPRANOLOL [Suspect]
     Route: 048
  3. SENNA ALEXANDRINA [Concomitant]
  4. THIAMINE [Concomitant]
  5. VITAMIN B COMPOUND STRONG [Concomitant]

REACTIONS (9)
  - Thinking abnormal [None]
  - Confusional state [None]
  - Delusional perception [None]
  - Hallucination [None]
  - Depressed mood [None]
  - Obsessive-compulsive disorder [None]
  - Gait disturbance [None]
  - Alcohol use [None]
  - Feeling guilty [None]
